FAERS Safety Report 25605864 (Version 1)
Quarter: 2025Q3

REPORT INFORMATION
  Report Type: Report from Study
  Country: EU (occurrence: EU)
  Receive Date: 20250725
  Receipt Date: 20250725
  Transmission Date: 20251020
  Serious: Yes (Hospitalization)
  Sender: EMD SERONO INC
  Company Number: EU-Merck Healthcare KGaA-2025003491

PATIENT
  Age: 33 Year
  Sex: Female

DRUGS (14)
  1. CLADRIBINE [Suspect]
     Active Substance: CLADRIBINE
     Indication: Relapsing multiple sclerosis
  2. CLADRIBINE [Suspect]
     Active Substance: CLADRIBINE
  3. CLADRIBINE [Suspect]
     Active Substance: CLADRIBINE
  4. CLADRIBINE [Suspect]
     Active Substance: CLADRIBINE
     Dates: start: 20200615, end: 20200619
  5. PREDNISONE [Concomitant]
     Active Substance: PREDNISONE
     Indication: Multiple sclerosis relapse
     Dates: start: 20200427, end: 20200514
  6. OMEPRAZOLE [Concomitant]
     Active Substance: OMEPRAZOLE
     Indication: Gastrointestinal disorder
     Dates: start: 20200427, end: 20200514
  7. LORAZEPAM [Concomitant]
     Active Substance: LORAZEPAM
     Indication: Insomnia
  8. ALEMTUZUMAB [Concomitant]
     Active Substance: ALEMTUZUMAB
     Indication: Multiple sclerosis relapse
     Dates: start: 20220627, end: 20220630
  9. ALEMTUZUMAB [Concomitant]
     Active Substance: ALEMTUZUMAB
     Dates: start: 20230904, end: 20230906
  10. ACYCLOVIR [Concomitant]
     Active Substance: ACYCLOVIR
     Indication: Rash
     Dates: start: 20220630, end: 20220630
  11. ACYCLOVIR [Concomitant]
     Active Substance: ACYCLOVIR
     Indication: Prophylaxis
     Dates: start: 20230904, end: 20231004
  12. NAPROXEN [Concomitant]
     Active Substance: NAPROXEN
     Indication: Headache
     Dates: start: 20230109, end: 20230112
  13. RIFAXIMIN ABC [Concomitant]
     Indication: Dyspepsia
  14. MONUROL [Concomitant]
     Active Substance: FOSFOMYCIN TROMETHAMINE
     Indication: Urinary tract infection

REACTIONS (2)
  - Leukopenia [Recovered/Resolved]
  - Neutropenia [Recovered/Resolved]

NARRATIVE: CASE EVENT DATE: 20231220
